FAERS Safety Report 8299393-7 (Version None)
Quarter: 2012Q2

REPORT INFORMATION
  Report Type: 
  Country: None (occurrence: None)
  Receive Date: 20120417
  Receipt Date: 20120403
  Transmission Date: 20120825
  Serious: Yes (Other)
  Sender: FDA-Public Use
  Company Number: AUR-APL-2012-00474

PATIENT
  Age: 63 Year
  Sex: Male

DRUGS (13)
  1. PHENYTOIN [Concomitant]
  2. SIMVASTATIN [Concomitant]
  3. ENOXAPARIN SODIUM [Concomitant]
  4. FORTISIP (FORTISIP) [Concomitant]
  5. PHENOBARBITAL TAB [Concomitant]
  6. LEVETIRACETAM [Suspect]
     Indication: GRAND MAL CONVULSION
     Dosage: 1000 MG (500 MG, 2 IN 1 D), ORAL; 500 MG (250 MG, 1 IN 1 D), ORAL; 500 MG (500 MG, 1 IN 1 D), ORAL
     Route: 048
     Dates: start: 20111020, end: 20111102
  7. LEVETIRACETAM [Suspect]
     Indication: STATUS EPILEPTICUS
     Dosage: 1000 MG (500 MG, 2 IN 1 D), ORAL; 500 MG (250 MG, 1 IN 1 D), ORAL; 500 MG (500 MG, 1 IN 1 D), ORAL
     Route: 048
     Dates: start: 20111020, end: 20111102
  8. LEVETIRACETAM [Suspect]
     Indication: GRAND MAL CONVULSION
     Dosage: 1000 MG (500 MG, 2 IN 1 D), ORAL; 500 MG (250 MG, 1 IN 1 D), ORAL; 500 MG (500 MG, 1 IN 1 D), ORAL
     Route: 048
     Dates: start: 20111103, end: 20111122
  9. LEVETIRACETAM [Suspect]
     Indication: STATUS EPILEPTICUS
     Dosage: 1000 MG (500 MG, 2 IN 1 D), ORAL; 500 MG (250 MG, 1 IN 1 D), ORAL; 500 MG (500 MG, 1 IN 1 D), ORAL
     Route: 048
     Dates: start: 20111103, end: 20111122
  10. LEVETIRACETAM [Suspect]
     Indication: GRAND MAL CONVULSION
     Dosage: 1000 MG (500 MG, 2 IN 1 D), ORAL; 500 MG (250 MG, 1 IN 1 D), ORAL; 500 MG (500 MG, 1 IN 1 D), ORAL
     Route: 048
     Dates: start: 20111123
  11. LEVETIRACETAM [Suspect]
     Indication: STATUS EPILEPTICUS
     Dosage: 1000 MG (500 MG, 2 IN 1 D), ORAL; 500 MG (250 MG, 1 IN 1 D), ORAL; 500 MG (500 MG, 1 IN 1 D), ORAL
     Route: 048
     Dates: start: 20111123
  12. SENNA (SENNA ALEXANDRIA) [Concomitant]
  13. XALACOM (XALACOM) /01575601/) [Concomitant]

REACTIONS (5)
  - THROMBOCYTOPENIA [None]
  - PLATELET COUNT DECREASED [None]
  - NEUTROPENIA [None]
  - BLOOD UREA INCREASED [None]
  - BLOOD SODIUM INCREASED [None]
